APPROVED DRUG PRODUCT: MAGNESIUM SULFATE
Active Ingredient: MAGNESIUM SULFATE
Strength: 25GM/50ML (500MG/ML)
Dosage Form/Route: SOLUTION;INTRAMUSCULAR, INTRAVENOUS
Application: N019316 | Product #004 | TE Code: AP
Applicant: FRESENIUS KABI USA LLC
Approved: Jan 29, 2016 | RLD: Yes | RS: Yes | Type: RX